FAERS Safety Report 25418876 (Version 2)
Quarter: 2025Q2

REPORT INFORMATION
  Report Type: Spontaneous
  Country: US (occurrence: US)
  Receive Date: 20250610
  Receipt Date: 20250617
  Transmission Date: 20250717
  Serious: No
  Sender: PFIZER
  Company Number: US-PFIZER INC-202500114287

PATIENT
  Age: 47 Year
  Sex: Male

DRUGS (1)
  1. GENOTROPIN [Suspect]
     Active Substance: SOMATROPIN
     Indication: Growth hormone deficiency
     Dosage: 0.8 MG, 1X/DAY
     Dates: start: 2024

REACTIONS (4)
  - Device issue [Unknown]
  - Device breakage [Unknown]
  - Device mechanical issue [Unknown]
  - Drug dose omission by device [Unknown]
